FAERS Safety Report 8759796 (Version 2)
Quarter: 2012Q4

REPORT INFORMATION
  Report Type: 
  Country: US (occurrence: US)
  Receive Date: 20120829
  Receipt Date: 20120903
  Transmission Date: 20130627
  Serious: Yes (Other)
  Sender: FDA-Public Use
  Company Number: US-BAYER-2012-089148

PATIENT
  Age: 68 Year
  Sex: Female
  Weight: 108.84 kg

DRUGS (5)
  1. BAYER ADVANCED ASPIRIN EXTRA STRENGTH [Suspect]
     Dosage: 1 DF, UNK
     Route: 048
  2. FISH OIL [Concomitant]
  3. CINNAMON [Concomitant]
  4. ACETYLSALICYLIC ACID({=100 MG) [Concomitant]
  5. NIACIN [Concomitant]

REACTIONS (8)
  - Apnoea [Recovered/Resolved]
  - Aphonia [Not Recovered/Not Resolved]
  - Choking [Recovered/Resolved]
  - Throat irritation [None]
  - Throat irritation [Not Recovered/Not Resolved]
  - Chemical burn of respiratory tract [None]
  - Dysphagia [None]
  - Pain [None]
